FAERS Safety Report 19899292 (Version 1)
Quarter: 2021Q3

REPORT INFORMATION
  Report Type: Spontaneous
  Country: US (occurrence: US)
  Receive Date: 20210929
  Receipt Date: 20210929
  Transmission Date: 20211014
  Serious: Yes (Other)
  Sender: FDA-Public Use
  Company Number: None

PATIENT
  Sex: Male

DRUGS (1)
  1. IMATINIB MESYLATE 400MG TABLETS [Suspect]
     Active Substance: IMATINIB MESYLATE

REACTIONS (2)
  - Feeling abnormal [None]
  - Amnesia [None]
